FAERS Safety Report 8315649-3 (Version None)
Quarter: 2012Q2

REPORT INFORMATION
  Report Type: 
  Country: None (occurrence: None)
  Receive Date: 20120426
  Receipt Date: 20120327
  Transmission Date: 20120825
  Serious: Yes (Hospitalization)
  Sender: FDA-Public Use
  Company Number: US-BAXTER-2012BAX001095

PATIENT
  Sex: Female

DRUGS (4)
  1. DIANEAL [Suspect]
     Route: 033
     Dates: start: 20100616
  2. EXTRANEAL [Suspect]
     Indication: PERITONEAL DIALYSIS
     Route: 033
     Dates: start: 20100616
  3. DIANEAL [Suspect]
     Indication: PERITONEAL DIALYSIS
     Route: 033
     Dates: start: 20100616
  4. DIANEAL [Suspect]
     Route: 033
     Dates: start: 20100616

REACTIONS (2)
  - PHARYNGITIS STREPTOCOCCAL [None]
  - BLOOD PRESSURE ABNORMAL [None]
